FAERS Safety Report 16259488 (Version 1)
Quarter: 2019Q2

REPORT INFORMATION
  Report Type: Spontaneous
  Country: US (occurrence: US)
  Receive Date: 20190501
  Receipt Date: 20190501
  Transmission Date: 20190711
  Serious: Yes (Other)
  Sender: FDA-Public Use
  Company Number: US-ACCORD-071128

PATIENT
  Age: 73 Year
  Sex: Male
  Weight: 63.5 kg

DRUGS (2)
  1. DUREZOL [Concomitant]
     Active Substance: DIFLUPREDNATE
  2. DOXAZOSIN ACCORD [Suspect]
     Active Substance: DOXAZOSIN\DOXAZOSIN MESYLATE
     Indication: BENIGN PROSTATIC HYPERPLASIA
     Route: 048

REACTIONS (6)
  - Drug ineffective [Unknown]
  - Dysuria [Recovered/Resolved]
  - Palpitations [Recovered/Resolved]
  - Eye haemorrhage [Recovered/Resolved]
  - Blood pressure increased [Recovered/Resolved]
  - Product substitution issue [Unknown]
